FAERS Safety Report 5346303-8 (Version None)
Quarter: 2007Q2

REPORT INFORMATION
  Report Type: 
  Country: None (occurrence: None)
  Receive Date: 20070420
  Receipt Date: 20061218
  Transmission Date: 20071010
  Serious: Yes (Hospitalization)
  Sender: FDA-Public Use
  Company Number: 06P-163-0353619-00

PATIENT
  Age: 69 Year
  Sex: Male

DRUGS (3)
  1. DEPAKOTE [Suspect]
  2. TEMOZOLOMIDE [Suspect]
     Indication: GLIOBLASTOMA MULTIFORME
     Dosage: 155 MG, 1 IN 1 D, PER ORAL
     Route: 048
     Dates: start: 20060920, end: 20061031
  3. BACTRIM [Suspect]
     Dosage: ON MONDAY, WEDNESDAY, FRIDAY

REACTIONS (6)
  - DYSPNOEA [None]
  - HYPOXIA [None]
  - LYMPHOPENIA [None]
  - MUCOSAL INFLAMMATION [None]
  - PANCYTOPENIA [None]
  - STOMATITIS [None]
